FAERS Safety Report 17544060 (Version 2)
Quarter: 2020Q1

REPORT INFORMATION
  Report Type: Spontaneous
  Country: ES (occurrence: ES)
  Receive Date: 20200316
  Receipt Date: 20200327
  Transmission Date: 20200409
  Serious: Yes (Hospitalization)
  Sender: FDA-Public Use
  Company Number: NVSC2020ES072130

PATIENT
  Age: 4 Year
  Sex: Female

DRUGS (1)
  1. CANAKINUMAB. [Suspect]
     Active Substance: CANAKINUMAB
     Indication: STILL^S DISEASE
     Dosage: UNK, QMO
     Route: 065

REACTIONS (4)
  - Corona virus infection [Recovered/Resolved]
  - Drug ineffective [Unknown]
  - Pneumonia [Recovering/Resolving]
  - Pyrexia [Recovering/Resolving]
